FAERS Safety Report 4527574-4 (Version None)
Quarter: 2004Q4

REPORT INFORMATION
  Report Type: 
  Country: None (occurrence: None)
  Receive Date: 20041124
  Receipt Date: 20040820
  Transmission Date: 20050328
  Serious: Yes (Hospitalization)
  Sender: FDA-Public Use
  Company Number: 238791

PATIENT
  Age: 28 Year
  Sex: Male

DRUGS (2)
  1. NOVOLOG MIX 70/30 [Suspect]
     Indication: DIABETES MELLITUS INSULIN-DEPENDENT
     Dosage: 60 UNITS QAM; 40 UNITS QPM, SUBCUTANEOUS
     Route: 058
     Dates: start: 20031201
  2. TOPROL-XL [Concomitant]

REACTIONS (1)
  - DIABETIC KETOACIDOSIS [None]
